FAERS Safety Report 7816405-2 (Version None)
Quarter: 2011Q4

REPORT INFORMATION
  Report Type: 
  Country: None (occurrence: None)
  Receive Date: 20111017
  Receipt Date: 20111011
  Transmission Date: 20120403
  Serious: Yes (Hospitalization)
  Sender: FDA-Public Use
  Company Number: DE-BRISTOL-MYERS SQUIBB COMPANY-15042930

PATIENT
  Age: 57 Year
  Sex: Male
  Weight: 81 kg

DRUGS (6)
  1. VITAMIN B-12 [Concomitant]
     Dosage: ONGOING
     Dates: start: 20100303
  2. CETUXIMAB [Suspect]
     Indication: NON-SMALL CELL LUNG CANCER
     Dosage: DAY 1 OF THE CYCLE;250MG/M2 WEEKLY; ONGOING INTERRUPT FOR 42DAYS
     Route: 042
     Dates: start: 20100311, end: 20100427
  3. CORTICOSTEROID [Concomitant]
     Dosage: ONGOING
     Dates: start: 20100303
  4. PEMETREXED DISODIUM [Suspect]
     Indication: NON-SMALL CELL LUNG CANCER
     Dosage: DAY 1 EVERY 21 DAYS;1000MG (500MG/M2)500MG (400MG/M2)250MG/M2 WEEKLY INTERRUPT FOR 42DAYS
     Route: 042
     Dates: start: 20100311, end: 20100427
  5. CISPLATIN [Suspect]
     Indication: NON-SMALL CELL LUNG CANCER
     Dosage: DAY 1 EVERY 21 DAYS; :150MG (75MG/M2), INTERRUPT FOR 42DAYS
     Route: 042
     Dates: start: 20100311, end: 20100427
  6. FOLIC ACID [Concomitant]
     Dosage: ONGOING
     Dates: start: 20100303

REACTIONS (1)
  - DIVERTICULITIS [None]
